FAERS Safety Report 7406379-0 (Version None)
Quarter: 2011Q2

REPORT INFORMATION
  Report Type: 
  Country: None (occurrence: None)
  Receive Date: 20110411
  Receipt Date: 20110404
  Transmission Date: 20111010
  Serious: Yes (Other)
  Sender: FDA-Public Use
  Company Number: US-AMGEN-USASP2011017769

PATIENT
  Age: 76 Year
  Sex: Female

DRUGS (7)
  1. QUININE SULFATE [Concomitant]
  2. LESCOL                             /01224501/ [Concomitant]
  3. SINGULAIR [Concomitant]
  4. ALLEGRA [Concomitant]
  5. PROLIA [Suspect]
     Indication: OSTEOPOROSIS POSTMENOPAUSAL
     Dosage: 60 MG, Q6MO
     Dates: start: 20110401
  6. CALCIUM [Concomitant]
  7. MOBIC [Concomitant]

REACTIONS (9)
  - EYE PRURITUS [None]
  - EYE DISCHARGE [None]
  - DYSPNOEA [None]
  - DRUG HYPERSENSITIVITY [None]
  - SENSATION OF FOREIGN BODY [None]
  - EYE INFLAMMATION [None]
  - COUGH [None]
  - DYSPNOEA EXERTIONAL [None]
  - DYSPHONIA [None]
